FAERS Safety Report 9845678 (Version 2)
Quarter: 2014Q1

REPORT INFORMATION
  Report Type: Spontaneous
  Country: US (occurrence: US)
  Receive Date: 20140127
  Receipt Date: 20140129
  Transmission Date: 20141002
  Serious: No
  Sender: FDA-Public Use
  Company Number: US-PFIZER INC-2014020436

PATIENT
  Age: 65 Year
  Sex: Female
  Weight: 61.22 kg

DRUGS (3)
  1. LYRICA [Suspect]
     Indication: PAIN
     Dosage: 50 MG, 2X/DAY
     Dates: start: 20140103
  2. LYRICA [Suspect]
     Dosage: 100 MG, 3X/DAY (50MG TWO TIMES A DAY WHICH WAS TITRATED TO 100MG THREE TIMES A DAY)
     Dates: end: 20140117
  3. LYRICA [Suspect]
     Dosage: UNK (300)

REACTIONS (6)
  - Rash [Recovered/Resolved]
  - Rash pruritic [Unknown]
  - Chills [Unknown]
  - Dizziness [Unknown]
  - Drug effect incomplete [Unknown]
  - Hypersensitivity [Recovered/Resolved]
